FAERS Safety Report 12610851 (Version 3)
Quarter: 2016Q3

REPORT INFORMATION
  Report Type: Spontaneous
  Country: US (occurrence: US)
  Receive Date: 20160801
  Receipt Date: 20160906
  Transmission Date: 20161109
  Serious: No
  Sender: FDA-Public Use
  Company Number: US-PFIZER INC-2016341022

PATIENT
  Age: 66 Year
  Sex: Female
  Weight: 58.6 kg

DRUGS (4)
  1. DEPO-MEDROL [Suspect]
     Active Substance: METHYLPREDNISOLONE ACETATE
     Dosage: 60 MG, UNK
  2. DEPO-MEDROL [Suspect]
     Active Substance: METHYLPREDNISOLONE ACETATE
     Indication: ASTHMA
     Dosage: 80 MG, 1X/DAY
     Route: 030
     Dates: start: 2015, end: 2015
  3. DEPO-MEDROL [Suspect]
     Active Substance: METHYLPREDNISOLONE ACETATE
     Dosage: 20 MG, UNK
  4. DEPO-MEDROL [Suspect]
     Active Substance: METHYLPREDNISOLONE ACETATE
     Dosage: 40 MG, UNK

REACTIONS (3)
  - Memory impairment [Unknown]
  - Drug ineffective [Unknown]
  - Pain in extremity [Recovered/Resolved]

NARRATIVE: CASE EVENT DATE: 201507
